FAERS Safety Report 6999783-6 (Version None)
Quarter: 2010Q3

REPORT INFORMATION
  Report Type: 
  Country: None (occurrence: None)
  Receive Date: 20100920
  Receipt Date: 20100903
  Transmission Date: 20110219
  Serious: No
  Sender: FDA-Public Use
  Company Number: US-B.I. PHARMACEUTICALS,INC./RIDGEFIELD-2010-BP-09405BP

PATIENT
  Age: 68 Year
  Sex: Male

DRUGS (7)
  1. MIRAPEX [Suspect]
     Indication: RESTLESS LEGS SYNDROME
     Dosage: 1 MG
     Route: 048
     Dates: start: 20080111
  2. MIRAPEX [Suspect]
     Indication: PERIODIC LIMB MOVEMENT DISORDER
  3. GABAPENTIN [Concomitant]
     Dosage: 600 MG
     Dates: start: 20100628
  4. CLONAZEPAM [Concomitant]
     Dosage: 1500 MG
     Dates: start: 20080313
  5. METOPROLOL [Concomitant]
     Dosage: 50 MG
     Dates: start: 20060710
  6. OMEPRAZOLE [Concomitant]
     Dosage: 20 MG
     Dates: start: 20060216
  7. SIMVASTATIN [Concomitant]
     Dosage: 40 MG
     Dates: start: 20091113

REACTIONS (4)
  - ANAEMIA [None]
  - BLOOD FOLLICLE STIMULATING HORMONE DECREASED [None]
  - BLOOD PROLACTIN DECREASED [None]
  - BLOOD TESTOSTERONE DECREASED [None]
